FAERS Safety Report 7368478-1 (Version None)
Quarter: 2011Q1

REPORT INFORMATION
  Report Type: 
  Country: None (occurrence: None)
  Receive Date: 20110323
  Receipt Date: 20110310
  Transmission Date: 20110831
  Serious: Yes (Other)
  Sender: FDA-Public Use
  Company Number: JP-ASTRAZENECA-2011SE15259

PATIENT
  Age: 24795 Day
  Sex: Female

DRUGS (5)
  1. GRAN [Concomitant]
     Dates: start: 20110115, end: 20110201
  2. AMIKACIN [Concomitant]
     Dates: start: 20110104, end: 20110130
  3. RECOMOIDULIN [Concomitant]
     Dates: start: 20110105, end: 20110110
  4. AMBISOME [Concomitant]
     Dates: start: 20110110, end: 20110120
  5. MEROPEN [Suspect]
     Route: 042
     Dates: start: 20110115, end: 20110130

REACTIONS (3)
  - BLOOD ALKALINE PHOSPHATASE INCREASED [None]
  - BLOOD BILIRUBIN INCREASED [None]
  - HYPERKALAEMIA [None]
